FAERS Safety Report 7632799-5 (Version None)
Quarter: 2011Q3

REPORT INFORMATION
  Report Type: 
  Country: None (occurrence: None)
  Receive Date: 20110701
  Receipt Date: 20100504
  Transmission Date: 20111222
  Serious: Yes (Hospitalization)
  Sender: FDA-Public Use
  Company Number: 7003824

PATIENT
  Age: 42 Year
  Sex: Female

DRUGS (1)
  1. REBIF [Suspect]
     Indication: PRODUCT USED FOR UNKNOWN INDICATION
     Dosage: 44 MCG, 3 IN 1 WK, SUBCUTANEOUS
     Route: 058
     Dates: start: 20050825

REACTIONS (5)
  - INFLUENZA LIKE ILLNESS [None]
  - INJECTION SITE CELLULITIS [None]
  - INCONTINENCE [None]
  - ASTHENIA [None]
  - HEADACHE [None]
